FAERS Safety Report 7504100-9 (Version None)
Quarter: 2011Q2

REPORT INFORMATION
  Report Type: 
  Country: None (occurrence: None)
  Receive Date: 20110524
  Receipt Date: 20110524
  Transmission Date: 20111010
  Serious: Yes (Life-Threatening, Hospitalization, Disabling, Other)
  Sender: FDA-Public Use
  Company Number: None

PATIENT
  Age: 53 Year
  Sex: Female
  Weight: 72.5755 kg

DRUGS (5)
  1. RISPERIDONE [Suspect]
     Indication: PRODUCT USED FOR UNKNOWN INDICATION
     Dosage: RESPERIDONE 5MGS 1 ONCE PILL
  2. TEGRETOL [Concomitant]
  3. PHENOBARITHOL [Concomitant]
  4. DILANTIN [Concomitant]
  5. LEVETIRACETAM [Suspect]
     Indication: GRAND MAL CONVULSION
     Dosage: 1000 MGS LEVETIRACETAM 2 TWICE DAILY PILLS TOOK AT HOME TOO UNTIL REALIZED IT WAS CAUSE OF CONFUSION

REACTIONS (5)
  - AGGRESSION [None]
  - HALLUCINATION [None]
  - UNEVALUABLE EVENT [None]
  - DRUG HYPERSENSITIVITY [None]
  - DELUSION [None]
